FAERS Safety Report 25416881 (Version 1)
Quarter: 2025Q2

REPORT INFORMATION
  Report Type: Other
  Country: PL (occurrence: PL)
  Receive Date: 20250610
  Receipt Date: 20250610
  Transmission Date: 20250716
  Serious: Yes (Hospitalization, Other)
  Sender: COREPHARMA LLC
  Company Number: PL-CorePharma LLC-2178412

PATIENT
  Age: 89 Year
  Sex: Female

DRUGS (2)
  1. AMLODIPINE BESYLATE [Suspect]
     Active Substance: AMLODIPINE BESYLATE
     Indication: Hypertension
  2. RAMIPRIL [Suspect]
     Active Substance: RAMIPRIL

REACTIONS (1)
  - Subacute cutaneous lupus erythematosus [Recovering/Resolving]
